FAERS Safety Report 5810566-2 (Version None)
Quarter: 2008Q3

REPORT INFORMATION
  Report Type: 
  Country: None (occurrence: None)
  Receive Date: 20080709
  Receipt Date: 20080626
  Transmission Date: 20090109
  Serious: Yes (Life-Threatening, Hospitalization)
  Sender: FDA-Public Use
  Company Number: 2008EN000086

PATIENT
  Age: 59 Year
  Sex: Male

DRUGS (9)
  1. ABELCET [Suspect]
     Indication: BRONCHOPULMONARY ASPERGILLOSIS
     Dosage: IV
     Route: 042
     Dates: start: 20080510, end: 20080510
  2. ABELCET [Suspect]
     Indication: SEPSIS
     Dosage: IV
     Route: 042
     Dates: start: 20080510, end: 20080510
  3. ACETAMINOPHEN [Concomitant]
  4. ANTIHISTAMINE [Concomitant]
  5. CORTISONE [Concomitant]
  6. MOXIFLOXACIN HCL [Concomitant]
  7. ANTIHYPERTENSIVE [Concomitant]
  8. ANTIARRHYTHMIC [Concomitant]
  9. VOLUME/ BLOOD PLASMA/ ERYTHROCYTE CONCENTRATION ^HEMOFILTRATIONSLOESNI [Concomitant]

REACTIONS (1)
  - ANAPHYLACTIC REACTION [None]
